FAERS Safety Report 9253705 (Version 1)
Quarter: 2013Q2

REPORT INFORMATION
  Report Type: Spontaneous
  Country: US (occurrence: US)
  Receive Date: 20130425
  Receipt Date: 20130425
  Transmission Date: 20140414
  Serious: No
  Sender: FDA-Public Use
  Company Number: US-009507513-1304USA009648

PATIENT
  Sex: Male

DRUGS (4)
  1. INTRONA [Suspect]
     Indication: MALIGNANT MELANOMA
     Dosage: UNK
     Route: 042
     Dates: start: 20120604
  2. INTRONA [Suspect]
     Dosage: 22 MILLION IU, UNK
     Route: 058
     Dates: start: 20120702
  3. TYLENOL [Concomitant]
  4. BENADRYL [Concomitant]

REACTIONS (2)
  - Burning sensation [Unknown]
  - Induration [Unknown]
